FAERS Safety Report 5940340-8 (Version None)
Quarter: 2008Q4

REPORT INFORMATION
  Report Type: 
  Country: None (occurrence: None)
  Receive Date: 20081104
  Receipt Date: 20081031
  Transmission Date: 20090506
  Serious: Yes (Hospitalization)
  Sender: FDA-Public Use
  Company Number: GB-BRISTOL-MYERS SQUIBB COMPANY-14390884

PATIENT
  Sex: Female

DRUGS (1)
  1. APROVEL [Suspect]

REACTIONS (1)
  - HOSPITALISATION [None]
